FAERS Safety Report 4596536-3 (Version None)
Quarter: 2005Q1

REPORT INFORMATION
  Report Type: 
  Country: None (occurrence: None)
  Receive Date: 20050302
  Receipt Date: 20041110
  Transmission Date: 20050727
  Serious: Yes (Death, Life-Threatening, Hospitalization)
  Sender: FDA-Public Use
  Company Number: PHHO2004DE16099

PATIENT
  Age: 40 Year
  Sex: Male
  Weight: 74 kg

DRUGS (4)
  1. MYCOPHENOLATE MOFETIL [Suspect]
     Indication: RENAL TRANSPLANT
     Dosage: 1.5 G / DAY
     Route: 048
     Dates: start: 20040803, end: 20050101
  2. URBASON [Suspect]
     Indication: RENAL TRANSPLANT
     Dosage: 10 MG / DAY
     Route: 048
  3. URBASON [Suspect]
     Dosage: 16 MG / DAY
     Route: 048
     Dates: start: 20040803
  4. NEORAL [Suspect]
     Indication: RENAL TRANSPLANT
     Dosage: 175 - 200 MG/DAY
     Route: 048
     Dates: start: 20040803, end: 20041231

REACTIONS (14)
  - BACTERIAL INFECTION [None]
  - BLADDER CATHETER PERMANENT [None]
  - BLADDER DISORDER [None]
  - C-REACTIVE PROTEIN INCREASED [None]
  - EXPLORATIVE LAPAROTOMY [None]
  - HAEMATOCRIT DECREASED [None]
  - HAEMOGLOBIN DECREASED [None]
  - INTERSTITIAL LUNG DISEASE [None]
  - PANCREATITIS [None]
  - PANCREATITIS NECROTISING [None]
  - PNEUMOCYSTIS JIROVECI PNEUMONIA [None]
  - PROSTATIC OPERATION [None]
  - URINARY TRACT INFECTION [None]
  - WHITE BLOOD CELL COUNT INCREASED [None]
